FAERS Safety Report 15053829 (Version 1)
Quarter: 2018Q2

REPORT INFORMATION
  Report Type: Spontaneous
  Country: DE (occurrence: DE)
  Receive Date: 20180622
  Receipt Date: 20180622
  Transmission Date: 20180711
  Serious: Yes (Hospitalization)
  Sender: FDA-Public Use
  Company Number: DE-MYLANLABS-2018M1043520

PATIENT
  Age: 37 Year
  Sex: Female

DRUGS (14)
  1. ESCITALOPRAM [Suspect]
     Active Substance: ESCITALOPRAM OXALATE
     Dosage: INCREASED TO A DOSE OF 20 MG DAILY
     Route: 065
  2. ESCITALOPRAM [Suspect]
     Active Substance: ESCITALOPRAM OXALATE
     Indication: GENERALISED ANXIETY DISORDER
     Dosage: IN A MORNING TARGET DOSE OF 20 MG
     Route: 065
  3. RISPERIDONE. [Interacting]
     Active Substance: RISPERIDONE
     Indication: MENTAL DISORDER
  4. ARIPIPRAZOLE. [Interacting]
     Active Substance: ARIPIPRAZOLE
     Indication: PRODUCT USED FOR UNKNOWN INDICATION
     Dosage: 5 MG/DAY
     Route: 065
  5. ATORVASTATIN [Concomitant]
     Active Substance: ATORVASTATIN
     Indication: HYPERLIPIDAEMIA
     Route: 065
  6. PROMETHAZINE [Concomitant]
     Active Substance: PROMETHAZINE\PROMETHAZINE HYDROCHLORIDE
     Indication: PRODUCT USED FOR UNKNOWN INDICATION
     Route: 065
  7. PREGABALIN. [Concomitant]
     Active Substance: PREGABALIN
     Indication: DEPRESSION
  8. PREGABALIN. [Concomitant]
     Active Substance: PREGABALIN
     Indication: PANIC DISORDER
  9. LORAZEPAM. [Concomitant]
     Active Substance: LORAZEPAM
     Indication: PRODUCT USED FOR UNKNOWN INDICATION
     Dosage: IN CRISIS SITUATIONS WITH TEMPORARY EFFECT
     Route: 065
  10. PREGABALIN. [Concomitant]
     Active Substance: PREGABALIN
     Indication: GENERALISED ANXIETY DISORDER
     Dosage: EVENING DOSE OF 100 MG
     Route: 065
  11. RISPERIDONE. [Interacting]
     Active Substance: RISPERIDONE
     Indication: MERYCISM
     Dosage: 0.5 MG
     Route: 065
  12. ESCITALOPRAM [Suspect]
     Active Substance: ESCITALOPRAM OXALATE
     Indication: PANIC DISORDER
     Dosage: REDUCED TO 15 MG/DAY
     Route: 065
  13. RISPERIDONE. [Interacting]
     Active Substance: RISPERIDONE
     Indication: NEGATIVISM
  14. OPIPRAMOL [Concomitant]
     Active Substance: OPIPRAMOL
     Indication: PRODUCT USED FOR UNKNOWN INDICATION
     Dosage: IN CRISIS SITUATIONS WITH TEMPORARY EFFECT
     Route: 065

REACTIONS (4)
  - Drug interaction [Recovered/Resolved]
  - Menorrhagia [Recovered/Resolved]
  - Haematoma [Recovered/Resolved]
  - Sleep disorder [Unknown]
